FAERS Safety Report 12412137 (Version 3)
Quarter: 2016Q4

REPORT INFORMATION
  Report Type: Spontaneous
  Country: MX (occurrence: MX)
  Receive Date: 20160527
  Receipt Date: 20161129
  Transmission Date: 20170207
  Serious: Yes (Death, Hospitalization)
  Sender: FDA-Public Use
  Company Number: MX-HORIZON-ACT-0130-2016

PATIENT
  Age: 14 Year
  Sex: Male
  Weight: 35 kg

DRUGS (3)
  1. IMUKIN [Suspect]
     Active Substance: INTERFERON GAMMA
     Indication: CHRONIC GRANULOMATOUS DISEASE
     Dosage: 38 MG ONCE DAILY AND 60 MCG THRICE DAILY
     Route: 058
     Dates: start: 20150724, end: 20160704
  2. DICLOXACILINA [Concomitant]
     Indication: PYREXIA
     Route: 042
     Dates: start: 20160804, end: 20160822
  3. CEFEPIMA [Concomitant]
     Indication: PYREXIA
     Route: 042
     Dates: start: 20160809, end: 20160822

REACTIONS (7)
  - Pyrexia [Recovered/Resolved with Sequelae]
  - Bone marrow failure [Fatal]
  - Off label use [Unknown]
  - Bronchopulmonary aspergillosis [Fatal]
  - Autoimmune hepatitis [Recovered/Resolved with Sequelae]
  - Pulmonary haemorrhage [Fatal]
  - Brain abscess [Fatal]

NARRATIVE: CASE EVENT DATE: 20150724
